FAERS Safety Report 18528153 (Version 1)
Quarter: 2020Q4

REPORT INFORMATION
  Report Type: Spontaneous
  Country: US (occurrence: US)
  Receive Date: 20201120
  Receipt Date: 20201120
  Transmission Date: 20210114
  Serious: Yes (Hospitalization)
  Sender: FDA-Public Use
  Company Number: US-BAYER-2020-246797

PATIENT
  Age: 77 Year
  Sex: Female

DRUGS (8)
  1. MIRALAX [Suspect]
     Active Substance: POLYETHYLENE GLYCOL 3350
     Indication: GASTROINTESTINAL DISORDER
     Dosage: 17 G, QD
     Route: 048
     Dates: start: 202009
  2. MIRALAX [Suspect]
     Active Substance: POLYETHYLENE GLYCOL 3350
     Indication: GASTROINTESTINAL DISORDER
     Dosage: 2 DF IN 24 HOURS
     Dates: start: 20201111, end: 20201112
  3. VITAMIN D [VITAMIN D NOS] [Concomitant]
     Active Substance: VITAMIN D NOS
     Dosage: 1000 IU
  4. ELIQUIS [Concomitant]
     Active Substance: APIXABAN
  5. METOPROLOL TARTRATE. [Concomitant]
     Active Substance: METOPROLOL TARTRATE
  6. ATIVAN [Concomitant]
     Active Substance: LORAZEPAM
  7. DIOVAN [Concomitant]
     Active Substance: VALSARTAN
  8. COLACE [Concomitant]
     Active Substance: DOCUSATE SODIUM

REACTIONS (3)
  - Inappropriate schedule of product administration [Unknown]
  - Fall [Unknown]
  - Hospitalisation [Unknown]

NARRATIVE: CASE EVENT DATE: 2020
